FAERS Safety Report 17968697 (Version 3)
Quarter: 2021Q1

REPORT INFORMATION
  Report Type: Spontaneous
  Country: GB (occurrence: GB)
  Receive Date: 20200701
  Receipt Date: 20210304
  Transmission Date: 20210419
  Serious: Yes (Hospitalization, Other)
  Sender: FDA-Public Use
  Company Number: GB-OTSUKA-2020_015165

PATIENT
  Sex: Female
  Weight: 105.6 kg

DRUGS (5)
  1. AMISULPRIDE [Concomitant]
     Active Substance: AMISULPRIDE
     Indication: BIPOLAR DISORDER
     Dosage: 200 MG, BID
     Route: 065
  2. DEPAKOTE [Suspect]
     Active Substance: DIVALPROEX SODIUM
     Indication: BIPOLAR DISORDER
     Dosage: 1000 MG, BID
     Route: 065
  3. CLONAZEPAM. [Concomitant]
     Active Substance: CLONAZEPAM
     Indication: PRODUCT USED FOR UNKNOWN INDICATION
     Dosage: 0.5 MG, BID
     Route: 065
  4. ABILIFY MAINTENA [Suspect]
     Active Substance: ARIPIPRAZOLE
     Indication: BIPOLAR DISORDER
     Dosage: 400 MG, QM (ONCE MONTHLY)
     Route: 065
  5. ARIPIPRAZOLE. [Suspect]
     Active Substance: ARIPIPRAZOLE
     Indication: BIPOLAR DISORDER
     Dosage: 15 MG, (AS A PRELOAD)
     Route: 065

REACTIONS (3)
  - Psychotic disorder [Unknown]
  - Drug ineffective for unapproved indication [Unknown]
  - Bipolar disorder [Not Recovered/Not Resolved]
